FAERS Safety Report 22010547 (Version 21)
Quarter: 2024Q4

REPORT INFORMATION
  Report Type: Report from Study
  Country: CA (occurrence: CA)
  Receive Date: 20230220
  Receipt Date: 20241226
  Transmission Date: 20250114
  Serious: Yes (Other)
  Sender: ROCHE
  Company Number: CA-ROCHE-2853457

PATIENT
  Age: 61 Year
  Sex: Female

DRUGS (1)
  1. OCREVUS [Suspect]
     Active Substance: OCRELIZUMAB
     Indication: Primary progressive multiple sclerosis
     Dosage: 300 MG AT DAY 0 AND 14, THEN 600 MG EVERY 6 MONTH
     Route: 042
     Dates: start: 20210615

REACTIONS (21)
  - Rash [Unknown]
  - Urinary tract infection [Not Recovered/Not Resolved]
  - Dizziness [Not Recovered/Not Resolved]
  - Memory impairment [Unknown]
  - Oral herpes [Recovered/Resolved]
  - Gait disturbance [Unknown]
  - Wound infection [Unknown]
  - Somnolence [Unknown]
  - Fall [Unknown]
  - Muscular weakness [Unknown]
  - Arthropathy [Unknown]
  - Osteoarthritis [Unknown]
  - Pollakiuria [Unknown]
  - Off label use [Unknown]
  - Pain [Unknown]
  - Bladder disorder [Unknown]
  - Micturition disorder [Unknown]
  - Rhinorrhoea [Recovered/Resolved]
  - Diarrhoea [Not Recovered/Not Resolved]
  - Incontinence [Not Recovered/Not Resolved]
  - Fatigue [Not Recovered/Not Resolved]

NARRATIVE: CASE EVENT DATE: 20240101
